FAERS Safety Report 6411375-6 (Version None)
Quarter: 2009Q4

REPORT INFORMATION
  Report Type: 
  Country: None (occurrence: None)
  Receive Date: 20091023
  Receipt Date: 20091016
  Transmission Date: 20100525
  Serious: Yes (Other)
  Sender: FDA-Public Use
  Company Number: FR-ALLERGAN-0912271US

PATIENT
  Age: 75 Year

DRUGS (2)
  1. GANFORT [Suspect]
     Indication: OCULAR HYPERTENSION
     Dosage: 1 GTT, QD
     Route: 047
     Dates: start: 20081119, end: 20081210
  2. COMBIGAN [Concomitant]
     Indication: OCULAR HYPERTENSION
     Dosage: 1 GTT, QD
     Route: 047
     Dates: start: 20081119, end: 20081210

REACTIONS (1)
  - INTRAOCULAR PRESSURE INCREASED [None]
